FAERS Safety Report 8354740-2 (Version None)
Quarter: 2012Q2

REPORT INFORMATION
  Report Type: 
  Country: None (occurrence: None)
  Receive Date: 20120511
  Receipt Date: 20111230
  Transmission Date: 20120825
  Serious: Yes (Hospitalization)
  Sender: FDA-Public Use
  Company Number: FR-GLAXOSMITHKLINE-B0772530A

PATIENT
  Age: 53 Year
  Sex: Female
  Weight: 58 kg

DRUGS (3)
  1. HERCEPTIN [Concomitant]
     Indication: BREAST CANCER METASTATIC
     Dosage: 6MGK PER DAY
     Route: 042
     Dates: start: 20101213
  2. CLODRONATE [Concomitant]
     Dates: start: 20120101
  3. LAPATINIB [Suspect]
     Indication: BREAST CANCER METASTATIC
     Dosage: 1250MG PER DAY
     Route: 048
     Dates: start: 20111024, end: 20120220

REACTIONS (5)
  - DRUG ADMINISTRATION ERROR [None]
  - HYPERTENSION [None]
  - SKIN TOXICITY [None]
  - PLEURAL EFFUSION [None]
  - DISEASE PROGRESSION [None]
